FAERS Safety Report 13075425 (Version 1)
Quarter: 2016Q4

REPORT INFORMATION
  Report Type: Spontaneous
  Country: US (occurrence: US)
  Receive Date: 20161230
  Receipt Date: 20161230
  Transmission Date: 20170207
  Serious: No
  Sender: FDA-Public Use
  Company Number: US-GLAXOSMITHKLINE-US2016192446

PATIENT
  Age: 61 Year
  Sex: Female

DRUGS (14)
  1. ZANTAC [Suspect]
     Active Substance: RANITIDINE HYDROCHLORIDE
     Indication: GASTROOESOPHAGEAL REFLUX DISEASE
     Dosage: 150 MG, BID
     Route: 048
     Dates: start: 2008
  2. SYNTHROID [Concomitant]
     Active Substance: LEVOTHYROXINE SODIUM
  3. ASPIRIN. [Concomitant]
     Active Substance: ASPIRIN
  4. ESTRADIOL. [Concomitant]
     Active Substance: ESTRADIOL
  5. LIDOCAINE. [Concomitant]
     Active Substance: LIDOCAINE
  6. VAGIFEM [Concomitant]
     Active Substance: ESTRADIOL
  7. VOLTAREN [Concomitant]
     Active Substance: DICLOFENAC SODIUM
  8. KETOPROFEN. [Concomitant]
     Active Substance: KETOPROFEN
  9. PROMETRIUM [Concomitant]
     Active Substance: PROGESTERONE
  10. HUMALOG [Concomitant]
     Active Substance: INSULIN LISPRO
  11. ZANTAC [Suspect]
     Active Substance: RANITIDINE HYDROCHLORIDE
     Dosage: 300 MG, QD
     Route: 048
  12. ZANTAC [Suspect]
     Active Substance: RANITIDINE HYDROCHLORIDE
     Dosage: 300 MG, BID
     Route: 048
  13. LIPITOR [Concomitant]
     Active Substance: ATORVASTATIN CALCIUM
  14. RANITIDINE HYDROCHLORIDE TABLET [Suspect]
     Active Substance: RANITIDINE HYDROCHLORIDE
     Indication: GASTROOESOPHAGEAL REFLUX DISEASE
     Dosage: UNK UNK, U
     Route: 048
     Dates: start: 200903

REACTIONS (6)
  - Product substitution issue [Unknown]
  - Stress [Unknown]
  - Gastrooesophageal reflux disease [Recovered/Resolved]
  - Condition aggravated [Recovered/Resolved]
  - Abdominal pain upper [Recovered/Resolved]
  - Drug ineffective [Unknown]

NARRATIVE: CASE EVENT DATE: 20161118
